FAERS Safety Report 15280471 (Version 2)
Quarter: 2018Q4

REPORT INFORMATION
  Report Type: Spontaneous
  Country: CA (occurrence: CA)
  Receive Date: 20180815
  Receipt Date: 20181012
  Transmission Date: 20190204
  Serious: Yes (Other)
  Sender: FDA-Public Use
  Company Number: CA-PFIZER INC-2018270077

PATIENT
  Age: 56 Year
  Sex: Female

DRUGS (2)
  1. BACTERIOSTATIC SODIUM CHLORIDE [Suspect]
     Active Substance: SODIUM CHLORIDE
     Indication: VEHICLE SOLUTION USE
     Dosage: 0.05 ML, SINGLE DOSE (ON HER FOREHEAD)
     Route: 030
     Dates: start: 20180626, end: 20180626
  2. BOTOX COSMETIC [Concomitant]
     Active Substance: ONABOTULINUMTOXINA
     Indication: FACE LIFT
     Dosage: 5 UNITS, UNK
     Route: 030
     Dates: start: 20180626, end: 20180626

REACTIONS (4)
  - Application site pain [Recovered/Resolved]
  - Injection site paraesthesia [Recovered/Resolved]
  - Injection site pain [Recovered/Resolved]
  - Product odour abnormal [Recovered/Resolved]

NARRATIVE: CASE EVENT DATE: 20180626
